FAERS Safety Report 7319286-9 (Version None)
Quarter: 2011Q1

REPORT INFORMATION
  Report Type: 
  Country: None (occurrence: None)
  Receive Date: 20110228
  Receipt Date: 20100113
  Transmission Date: 20110831
  Serious: No
  Sender: FDA-Public Use
  Company Number: A0839219A

PATIENT
  Age: 34 Year
  Sex: Male

DRUGS (3)
  1. LAMOTRIGINE [Suspect]
     Indication: BIPOLAR DISORDER
     Dosage: 100MG PER DAY
     Route: 048
     Dates: start: 20090601, end: 20091223
  2. KLONOPIN [Concomitant]
  3. ANDRODERM [Concomitant]

REACTIONS (2)
  - URINARY TRACT DISORDER [None]
  - NOCTURIA [None]
